FAERS Safety Report 14849619 (Version 2)
Quarter: 2018Q2

REPORT INFORMATION
  Report Type: Spontaneous
  Country: US (occurrence: US)
  Receive Date: 20180504
  Receipt Date: 20180530
  Transmission Date: 20180711
  Serious: No
  Sender: FDA-Public Use
  Company Number: US-GLAXOSMITHKLINE-US2018075897

PATIENT
  Sex: Female

DRUGS (5)
  1. BRILINTA [Concomitant]
     Active Substance: TICAGRELOR
  2. MEDROL [Concomitant]
     Active Substance: METHYLPREDNISOLONE
  3. BENLYSTA [Suspect]
     Active Substance: BELIMUMAB
     Indication: SYSTEMIC LUPUS ERYTHEMATOSUS
     Dosage: 200 MG, CYC
     Route: 058
  4. ASPIRIN. [Concomitant]
     Active Substance: ASPIRIN
  5. MYCOPHENOLATE [Concomitant]
     Active Substance: MYCOPHENOLIC ACID

REACTIONS (6)
  - Product quality issue [Unknown]
  - Accidental exposure to product [Unknown]
  - Fatigue [Recovered/Resolved]
  - Underdose [Unknown]
  - Intentional overdose [Unknown]
  - Arthralgia [Recovered/Resolved]
